FAERS Safety Report 8844861 (Version 2)
Quarter: 2014Q3

REPORT INFORMATION
  Report Type: Spontaneous
  Country: CA (occurrence: CA)
  Receive Date: 20121017
  Receipt Date: 20140923
  Transmission Date: 20150326
  Serious: Yes (Hospitalization, Other)
  Sender: FDA-Public Use
  Company Number: CA-ELI_LILLY_AND_COMPANY-CA201210001812

PATIENT
  Age: 59 Year
  Sex: Female
  Weight: 69.84 kg

DRUGS (6)
  1. HUMIRA [Suspect]
     Active Substance: ADALIMUMAB
     Indication: RHEUMATOID ARTHRITIS
     Dosage: 40 MG, OTHER
     Route: 058
     Dates: start: 20120115
  2. FOLIC ACID. [Concomitant]
     Active Substance: FOLIC ACID
     Dosage: 2.5 MG, QD
     Route: 048
     Dates: start: 2006
  3. ERGOCALCIFEROL. [Concomitant]
     Active Substance: ERGOCALCIFEROL
     Indication: SUPPLEMENTATION THERAPY
     Dosage: 1000 IU, QD
  4. CYMBALTA [Suspect]
     Active Substance: DULOXETINE HYDROCHLORIDE
     Indication: PRODUCT USED FOR UNKNOWN INDICATION
     Dosage: UNK, UNKNOWN
     Route: 065
  5. METHOTREXATE [Concomitant]
     Active Substance: METHOTREXATE
     Indication: RHEUMATOID ARTHRITIS
     Dosage: 10 DF, WEEKLY (1/W)
     Route: 048
     Dates: start: 201201
  6. CYANOCOBALAMIN. [Concomitant]
     Active Substance: CYANOCOBALAMIN
     Indication: SUPPLEMENTATION THERAPY
     Dosage: ^500 MG, QD
     Route: 048

REACTIONS (11)
  - Chronic obstructive pulmonary disease [Unknown]
  - Fibromyalgia [Unknown]
  - Malaise [Unknown]
  - Osteoarthritis [Unknown]
  - Panic attack [Unknown]
  - Feeling abnormal [Unknown]
  - Tremor [Recovered/Resolved]
  - Chest discomfort [Recovered/Resolved]
  - Dry mouth [Recovered/Resolved]
  - Adverse drug reaction [Unknown]
  - Dyspnoea [Recovered/Resolved]

NARRATIVE: CASE EVENT DATE: 2010
